FAERS Safety Report 9527257 (Version 4)
Quarter: 2014Q1

REPORT INFORMATION
  Report Type: Spontaneous
  Country: US (occurrence: US)
  Receive Date: 20130917
  Receipt Date: 20140107
  Transmission Date: 20141002
  Serious: Yes (Hospitalization)
  Sender: FDA-Public Use
  Company Number: US-BIOGENIDEC-2013BI087451

PATIENT
  Age: 40 Year
  Sex: Female

DRUGS (7)
  1. AVONEX [Suspect]
     Indication: MULTIPLE SCLEROSIS
     Route: 030
  2. AVONEX [Suspect]
     Indication: MULTIPLE SCLEROSIS
     Route: 030
     Dates: start: 19980301, end: 20110602
  3. AVONEX [Suspect]
     Indication: MULTIPLE SCLEROSIS
     Route: 030
     Dates: start: 20120626, end: 20130908
  4. FENTANYL [Concomitant]
  5. HYDROCODONE- IBUPROFEN [Concomitant]
  6. XANAX [Concomitant]
  7. ZOLOFT [Concomitant]

REACTIONS (2)
  - Renal cancer [Unknown]
  - Renal cancer recurrent [Not Recovered/Not Resolved]
